FAERS Safety Report 14860306 (Version 2)
Quarter: 2018Q2

REPORT INFORMATION
  Report Type: Spontaneous
  Country: US (occurrence: US)
  Receive Date: 20180508
  Receipt Date: 20180511
  Transmission Date: 20180711
  Serious: Yes (Other)
  Sender: FDA-Public Use
  Company Number: US-SA-2018SA125847

PATIENT
  Age: 28 Year
  Sex: Female

DRUGS (5)
  1. ATARAX [Concomitant]
     Active Substance: HYDROXYZINE HYDROCHLORIDE
  2. HUMIRA [Concomitant]
     Active Substance: ADALIMUMAB
     Route: 065
  3. DUPIXENT [Suspect]
     Active Substance: DUPILUMAB
     Indication: DERMATITIS ATOPIC
     Route: 058
     Dates: start: 201803
  4. XELJANZ [Concomitant]
     Active Substance: TOFACITINIB CITRATE
     Route: 065
  5. BENADRYL [Concomitant]
     Active Substance: DIPHENHYDRAMINE HYDROCHLORIDE

REACTIONS (28)
  - Papilloedema [Unknown]
  - Condition aggravated [Unknown]
  - Nystagmus [Unknown]
  - Butterfly rash [Unknown]
  - Back pain [Unknown]
  - Musculoskeletal stiffness [Unknown]
  - Inflammation [Unknown]
  - Dizziness [Recovered/Resolved]
  - Lupus-like syndrome [Unknown]
  - Pain in extremity [Unknown]
  - Conjunctivitis [Unknown]
  - Feeling abnormal [Unknown]
  - Eye disorder [Unknown]
  - Thinking abnormal [Unknown]
  - Fatigue [Unknown]
  - Feeling abnormal [Unknown]
  - Asthenia [Unknown]
  - Asthenia [Unknown]
  - Herpes zoster [Unknown]
  - Pain [Unknown]
  - Hyperhidrosis [Unknown]
  - Joint stiffness [Unknown]
  - Asthenopia [Unknown]
  - Erythema [Unknown]
  - Skin disorder [Unknown]
  - Neuralgia [Recovered/Resolved]
  - Unevaluable event [Unknown]
  - Stress [Unknown]

NARRATIVE: CASE EVENT DATE: 20180328
